FAERS Safety Report 18640497 (Version 1)
Quarter: 2020Q4

REPORT INFORMATION
  Report Type: Spontaneous
  Country: US (occurrence: US)
  Receive Date: 20201221
  Receipt Date: 20201221
  Transmission Date: 20210114
  Serious: No
  Sender: FDA-Public Use
  Company Number: US-SA-2020SA362020

PATIENT

DRUGS (1)
  1. DUPIXENT [Suspect]
     Active Substance: DUPILUMAB
     Indication: ASTHMA
     Dosage: 600 MG, 1X
     Route: 058
     Dates: start: 20201208, end: 20201208

REACTIONS (5)
  - Glossodynia [Unknown]
  - Hair disorder [Unknown]
  - Product use issue [Unknown]
  - Hypertrophy of tongue papillae [Unknown]
  - Salivary gland pain [Unknown]

NARRATIVE: CASE EVENT DATE: 202012
